FAERS Safety Report 8934936 (Version 1)
Quarter: 2012Q4

REPORT INFORMATION
  Report Type: Report from Study
  Country: GR (occurrence: GR)
  Receive Date: 20121129
  Receipt Date: 20121129
  Transmission Date: 20130627
  Serious: Yes (Other)
  Sender: FDA-Public Use
  Company Number: GR-ROCHE-1157182

PATIENT
  Age: 48 Year
  Sex: Male

DRUGS (6)
  1. BEVACIZUMAB [Suspect]
     Indication: LUNG ADENOCARCINOMA
     Route: 065
     Dates: start: 201110, end: 201203
  2. BEVACIZUMAB [Suspect]
     Route: 065
     Dates: start: 201204, end: 201208
  3. CARBOPLATIN [Suspect]
     Indication: LUNG ADENOCARCINOMA
     Route: 065
     Dates: start: 201110, end: 201203
  4. DOCETAXEL [Suspect]
     Indication: LUNG ADENOCARCINOMA
     Route: 065
     Dates: start: 201110, end: 201203
  5. ZOLEDRONIC ACID [Suspect]
     Indication: LUNG ADENOCARCINOMA
     Route: 065
     Dates: start: 201110, end: 201203
  6. ZOLEDRONIC ACID [Suspect]
     Route: 065
     Dates: start: 201204, end: 201208

REACTIONS (3)
  - Therapeutic response decreased [Unknown]
  - Therapeutic response decreased [Unknown]
  - Disease progression [Unknown]
